FAERS Safety Report 4713119-2 (Version None)
Quarter: 2005Q3

REPORT INFORMATION
  Report Type: 
  Country: None (occurrence: None)
  Receive Date: 20050701
  Receipt Date: 20050420
  Transmission Date: 20060218
  Serious: Yes (Other)
  Sender: FDA-Public Use
  Company Number: 2004081561

PATIENT
  Age: 69 Year
  Sex: Male

DRUGS (5)
  1. ZOLOFT [Suspect]
     Indication: ANXIETY
     Dosage: 75 MG (1 IN 1 D), ORAL
     Route: 048
     Dates: end: 20041008
  2. ZOLOFT [Suspect]
     Indication: DEPRESSION
     Dosage: 75 MG (1 IN 1 D), ORAL
     Route: 048
     Dates: end: 20041008
  3. CARVEDILOL [Suspect]
     Indication: CARDIAC FAILURE CONGESTIVE
     Dosage: 25 MG (12.5 MG, 2 IN 1 D)
  4. LISINOPRIL [Concomitant]
  5. WARFARIN [Concomitant]

REACTIONS (2)
  - BLOOD PRESSURE SYSTOLIC DECREASED [None]
  - DRUG INTERACTION [None]
